FAERS Safety Report 8097952-8 (Version None)
Quarter: 2012Q1

REPORT INFORMATION
  Report Type: 
  Country: None (occurrence: None)
  Receive Date: 20120128
  Receipt Date: 20110729
  Transmission Date: 20120608
  Serious: No
  Sender: FDA-Public Use
  Company Number: US-ABBOTT-11P-163-0843231-00

PATIENT
  Sex: Female
  Weight: 78.088 kg

DRUGS (4)
  1. HUMIRA [Suspect]
     Indication: PSORIATIC ARTHROPATHY
     Dates: start: 20110601
  2. SPIRONOLACTONE [Concomitant]
     Indication: HYPERTENSION
     Dosage: NOT REPORTED
  3. ALLEGRA [Concomitant]
     Indication: HYPERSENSITIVITY
     Dosage: NOT REPORTED
  4. SINGULAIR [Concomitant]
     Indication: HYPERSENSITIVITY
     Dosage: NOT REPORTED

REACTIONS (2)
  - DIZZINESS [None]
  - INJECTION SITE PAIN [None]
